FAERS Safety Report 10655909 (Version 1)
Quarter: 2014Q4

REPORT INFORMATION
  Report Type: Spontaneous
  Country: US (occurrence: US)
  Receive Date: 20141216
  Receipt Date: 20141216
  Transmission Date: 20150529
  Serious: Yes (Hospitalization)
  Sender: FDA-Public Use
  Company Number: US-PFIZER INC-2014340444

PATIENT
  Age: 16 Year
  Sex: Male

DRUGS (1)
  1. AMLODIPINE BESILATE [Suspect]
     Active Substance: AMLODIPINE BESYLATE
     Dosage: 300 MG, SINGLE (30 TABLETS OF 10 MG)

REACTIONS (3)
  - Distributive shock [Recovered/Resolved]
  - Intentional overdose [Unknown]
  - Arrhythmia [Unknown]
